FAERS Safety Report 24810821 (Version 1)
Quarter: 2025Q1

REPORT INFORMATION
  Report Type: Spontaneous
  Country: US (occurrence: None)
  Receive Date: 20250104
  Receipt Date: 20250104
  Transmission Date: 20250408
  Serious: Yes (Life-Threatening, Hospitalization, Other)
  Sender: FDA-CTU
  Company Number: None

PATIENT
  Age: 32 Year
  Sex: Female

DRUGS (3)
  1. VALPROIC ACID [Suspect]
     Active Substance: VALPROIC ACID
  2. HALDOL [Suspect]
     Active Substance: HALOPERIDOL
  3. SEROQUEL [Suspect]
     Active Substance: QUETIAPINE FUMARATE

REACTIONS (4)
  - Hallucination [None]
  - Near death experience [None]
  - Mental impairment [None]
  - Insomnia [None]
